FAERS Safety Report 12390016 (Version 1)
Quarter: 2016Q2

REPORT INFORMATION
  Report Type: Spontaneous
  Country: US (occurrence: US)
  Receive Date: 20160520
  Receipt Date: 20160520
  Transmission Date: 20160815
  Serious: Yes (Hospitalization, Other)
  Sender: FDA-Public Use
  Company Number: US-BAYER-2016-093114

PATIENT
  Age: 31 Year
  Sex: Female

DRUGS (2)
  1. AMPHETAMINE SALTS [Concomitant]
     Active Substance: AMPHETAMINE ASPARTATE\AMPHETAMINE SULFATE\DEXTROAMPHETAMINE SACCHARATE\DEXTROAMPHETAMINE SULFATE
     Indication: ATTENTION DEFICIT/HYPERACTIVITY DISORDER
     Dosage: UNK
     Dates: start: 2005, end: 2015
  2. MIRENA [Suspect]
     Active Substance: LEVONORGESTREL
     Indication: CONTRACEPTION
     Dosage: DAILY DOSE 20 ?G
     Route: 015
     Dates: start: 20080725, end: 20131128

REACTIONS (11)
  - Device issue [None]
  - Device difficult to use [None]
  - Embedded device [None]
  - Genital haemorrhage [None]
  - Uterine scar [None]
  - Dysmenorrhoea [None]
  - Abdominal distension [None]
  - Fear [None]
  - Pelvic pain [None]
  - Anxiety [None]
  - Device use issue [None]

NARRATIVE: CASE EVENT DATE: 200807
